FAERS Safety Report 16535972 (Version 3)
Quarter: 2020Q2

REPORT INFORMATION
  Report Type: Report from Study
  Country: None (occurrence: US)
  Receive Date: 20190705
  Receipt Date: 20200402
  Transmission Date: 20200713
  Serious: Yes (Other)
  Sender: FDA-Public Use
  Company Number: US-ABBVIE-19K-163-2658853-00

PATIENT
  Age: 58 Year
  Sex: Female

DRUGS (11)
  1. IMBRUVICA [Suspect]
     Active Substance: IBRUTINIB
     Indication: CHRONIC LYMPHOCYTIC LEUKAEMIA
     Route: 048
     Dates: start: 201901
  2. VENCLEXTA [Suspect]
     Active Substance: VENETOCLAX
     Indication: CHRONIC LYMPHOCYTIC LEUKAEMIA
     Route: 048
     Dates: start: 20180204
  3. VENCLEXTA [Suspect]
     Active Substance: VENETOCLAX
     Indication: LYMPHOCYTIC LEUKAEMIA
     Route: 048
  4. ALLOPURINOL. [Concomitant]
     Active Substance: ALLOPURINOL
     Indication: PRODUCT USED FOR UNKNOWN INDICATION
  5. LABETALOL HYDROCHLORIDE. [Concomitant]
     Active Substance: LABETALOL HYDROCHLORIDE
     Indication: PRODUCT USED FOR UNKNOWN INDICATION
  6. CITALOPRAM HYDROBROMIDE. [Concomitant]
     Active Substance: CITALOPRAM HYDROBROMIDE
     Indication: PRODUCT USED FOR UNKNOWN INDICATION
  7. LISINOPRIL/HYDROCHLOORTHIAZIDE [Concomitant]
     Active Substance: HYDROCHLOROTHIAZIDE\LISINOPRIL
     Indication: PRODUCT USED FOR UNKNOWN INDICATION
  8. MONTELUKAST SODIUM. [Concomitant]
     Active Substance: MONTELUKAST SODIUM
     Indication: PRODUCT USED FOR UNKNOWN INDICATION
  9. K-DUR [Concomitant]
     Active Substance: POTASSIUM CHLORIDE
     Indication: PRODUCT USED FOR UNKNOWN INDICATION
  10. ONDANSETRON HYDROCHLORIDE. [Concomitant]
     Active Substance: ONDANSETRON HYDROCHLORIDE
     Indication: PRODUCT USED FOR UNKNOWN INDICATION
  11. CHERATUSSIN AC [Concomitant]
     Active Substance: CODEINE PHOSPHATE\GUAIFENESIN
     Indication: PRODUCT USED FOR UNKNOWN INDICATION

REACTIONS (15)
  - Skin texture abnormal [Unknown]
  - Myalgia [Unknown]
  - Eye haemorrhage [Recovering/Resolving]
  - Muscle spasms [Recovered/Resolved]
  - Adverse drug reaction [Unknown]
  - Sinusitis [Unknown]
  - Contusion [Unknown]
  - Retinal aneurysm [Recovering/Resolving]
  - Epistaxis [Unknown]
  - Diarrhoea [Recovered/Resolved]
  - Fatigue [Unknown]
  - Blood disorder [Recovering/Resolving]
  - Ocular vascular disorder [Recovering/Resolving]
  - Gingival bleeding [Unknown]
  - Petechiae [Unknown]

NARRATIVE: CASE EVENT DATE: 201901
